FAERS Safety Report 24125703 (Version 1)
Quarter: 2024Q3

REPORT INFORMATION
  Report Type: Spontaneous
  Country: IT (occurrence: IT)
  Receive Date: 20240723
  Receipt Date: 20240723
  Transmission Date: 20241016
  Serious: Yes (Other)
  Sender: MYLAN
  Company Number: IT-MYLANLABS-2024M1066767

PATIENT
  Sex: Female

DRUGS (5)
  1. TOPIRAMATE [Suspect]
     Active Substance: TOPIRAMATE
     Indication: Seizure
     Dosage: 500 MILLIGRAM, QD
     Route: 065
  2. LACOSAMIDE [Suspect]
     Active Substance: LACOSAMIDE
     Indication: Seizure
     Dosage: 600 MILLIGRAM, QD
     Route: 065
  3. CLOBAZAM [Suspect]
     Active Substance: CLOBAZAM
     Indication: Seizure
     Dosage: UNK
     Route: 065
  4. LAMOTRIGINE [Suspect]
     Active Substance: LAMOTRIGINE
     Indication: Seizure
     Dosage: UNK
     Route: 065
  5. VALPROIC ACID [Suspect]
     Active Substance: VALPROIC ACID
     Indication: Seizure
     Dosage: UNK
     Route: 065

REACTIONS (1)
  - Drug ineffective [Unknown]
